FAERS Safety Report 6163335-0 (Version None)
Quarter: 2009Q2

REPORT INFORMATION
  Report Type: 
  Country: None (occurrence: None)
  Receive Date: 20090422
  Receipt Date: 20010720
  Transmission Date: 20091009
  Serious: No
  Sender: FDA-Public Use
  Company Number: US-SOLVAY-00201003167

PATIENT
  Sex: Female

DRUGS (1)
  1. ANDROGEL [Suspect]
     Indication: ACCIDENTAL EXPOSURE
     Dosage: DAILY DOSE: UNK. FREQUENCY:UNKNOWN
     Route: 062
     Dates: start: 20000101

REACTIONS (2)
  - ACNE [None]
  - LOSS OF LIBIDO [None]
